FAERS Safety Report 17030297 (Version 2)
Quarter: 2020Q1

REPORT INFORMATION
  Report Type: Spontaneous
  Country: JP (occurrence: JP)
  Receive Date: 20191114
  Receipt Date: 20200120
  Transmission Date: 20200409
  Serious: Yes (Hospitalization, Other)
  Sender: FDA-Public Use
  Company Number: JP-PFIZER INC-2018426233

PATIENT
  Age: 53 Year
  Sex: Male
  Weight: 70 kg

DRUGS (2)
  1. RHEUMATREX [Suspect]
     Active Substance: METHOTREXATE SODIUM
     Indication: RHEUMATOID ARTHRITIS
     Dosage: 4 MG, WEEKLY
     Route: 048
  2. BUCILLAMINE [Suspect]
     Active Substance: BUCILLAMINE
     Indication: RHEUMATOID ARTHRITIS
     Dosage: 100 MG, TWICE A DAY
     Route: 048
     Dates: end: 20090203

REACTIONS (4)
  - Glomerulonephritis membranous [Unknown]
  - Nephrotic syndrome [Recovering/Resolving]
  - Rheumatoid arthritis [Unknown]
  - Hyperlipidaemia [Unknown]

NARRATIVE: CASE EVENT DATE: 20090203
